FAERS Safety Report 11622230 (Version 2)
Quarter: 2015Q4

REPORT INFORMATION
  Report Type: Spontaneous
  Country: US (occurrence: US)
  Receive Date: 20151013
  Receipt Date: 20151126
  Transmission Date: 20160304
  Serious: No
  Sender: FDA-Public Use
  Company Number: US-JNJFOC-20150902383

PATIENT
  Age: 1 Year
  Sex: Female
  Weight: 9.53 kg

DRUGS (1)
  1. MOTRIN [Suspect]
     Active Substance: IBUPROFEN
     Indication: PYREXIA
     Dosage: LESS THAN 1.25 ML ONE TIME (50 MG PER 1.25 ML)
     Route: 048
     Dates: start: 20150922, end: 20150922

REACTIONS (5)
  - Crying [Recovered/Resolved]
  - Hypoaesthesia oral [Recovered/Resolved]
  - Fatigue [Recovered/Resolved]
  - Incorrect dose administered [Recovered/Resolved]
  - Irritability [Recovered/Resolved]

NARRATIVE: CASE EVENT DATE: 20150922
